FAERS Safety Report 4717433-6 (Version None)
Quarter: 2005Q3

REPORT INFORMATION
  Report Type: 
  Country: None (occurrence: None)
  Receive Date: 20050719
  Receipt Date: 20050616
  Transmission Date: 20060218
  Serious: Yes (Other)
  Sender: FDA-Public Use
  Company Number: CA-MERCK-0507USA00385

PATIENT
  Sex: Female

DRUGS (1)
  1. IVOMEC [Suspect]
     Indication: DRUG ADMINISTRATION ERROR
     Route: 061
     Dates: start: 20050101, end: 20050101

REACTIONS (3)
  - ACCIDENTAL EXPOSURE [None]
  - ACUTE STRESS DISORDER [None]
  - PARAESTHESIA [None]
